FAERS Safety Report 6375949-3 (Version None)
Quarter: 2009Q3

REPORT INFORMATION
  Report Type: 
  Country: None (occurrence: None)
  Receive Date: 20090918
  Receipt Date: 20090903
  Transmission Date: 20100115
  Serious: Yes (Death)
  Sender: FDA-Public Use
  Company Number: 8051939

PATIENT
  Age: 68 Year
  Sex: Female

DRUGS (11)
  1. KEPPRA [Suspect]
     Dosage: PO
     Route: 048
     Dates: end: 20090817
  2. HOLOXAN [Suspect]
     Indication: NON-HODGKIN'S LYMPHOMA RECURRENT
     Dosage: IV
     Route: 042
     Dates: start: 20090810, end: 20090814
  3. ETOPOSIDE [Suspect]
     Indication: NON-HODGKIN'S LYMPHOMA RECURRENT
     Dosage: IV
     Route: 042
     Dates: start: 20090810, end: 20090812
  4. ARACYTINE [Suspect]
     Indication: NON-HODGKIN'S LYMPHOMA RECURRENT
     Dosage: IV
     Route: 042
     Dates: start: 20090810, end: 20090812
  5. METHOTREXATE [Suspect]
     Indication: NON-HODGKIN'S LYMPHOMA RECURRENT
     Dosage: IV
     Route: 042
     Dates: start: 20090814, end: 20090814
  6. UROMITEXAN [Suspect]
     Indication: NON-HODGKIN'S LYMPHOMA RECURRENT
     Dosage: IV
     Route: 042
     Dates: start: 20090810, end: 20090814
  7. LASIX [Suspect]
     Dosage: IV
     Route: 042
     Dates: start: 20090806, end: 20090818
  8. AVANDIA [Suspect]
     Dosage: PO
     Route: 048
     Dates: end: 20090818
  9. DRIPTANE [Suspect]
     Dosage: PO
     Route: 048
     Dates: end: 20090919
  10. GLUCOPHAGE [Suspect]
     Dosage: PO
     Route: 048
     Dates: end: 20090818
  11. CALCIUM FOLINATE EG [Suspect]
     Dosage: PO
     Route: 048
     Dates: end: 20090819

REACTIONS (12)
  - CONFUSIONAL STATE [None]
  - DEPRESSED LEVEL OF CONSCIOUSNESS [None]
  - ENCEPHALOPATHY [None]
  - ESCHERICHIA INFECTION [None]
  - HYPERTHERMIA [None]
  - HYPOTENSION [None]
  - LEUKOPENIA [None]
  - NO THERAPEUTIC RESPONSE [None]
  - NON-HODGKIN'S LYMPHOMA RECURRENT [None]
  - RENAL FAILURE ACUTE [None]
  - SEPSIS [None]
  - SOMNOLENCE [None]
